FAERS Safety Report 14514141 (Version 3)
Quarter: 2018Q3

REPORT INFORMATION
  Report Type: Spontaneous
  Country: GB (occurrence: GB)
  Receive Date: 20180209
  Receipt Date: 20180827
  Transmission Date: 20181010
  Serious: Yes (Hospitalization, Other)
  Sender: FDA-Public Use
  Company Number: GB-PFIZER INC-2018053753

PATIENT
  Age: 48 Year
  Sex: Female

DRUGS (10)
  1. PHENYTOIN. [Suspect]
     Active Substance: PHENYTOIN
     Dosage: UNK
  2. CLOZAPINE. [Suspect]
     Active Substance: CLOZAPINE
     Dosage: 450 MG, 1X/DAY PM
  3. CLOZARIL [Suspect]
     Active Substance: CLOZAPINE
     Indication: SCHIZOPHRENIA
     Dosage: 200 MG, 2X/DAY
     Route: 048
     Dates: start: 20060718
  4. VITAMIN D3 [Concomitant]
     Active Substance: CHOLECALCIFEROL
     Dosage: 1 DF, WEEKLY
  5. HYOSCINE [Concomitant]
     Active Substance: SCOPOLAMINE
     Dosage: 150 UG, 1X/DAY PM
  6. MIRTAZAPINE. [Concomitant]
     Active Substance: MIRTAZAPINE
     Dosage: 45 MG, 1X/DAY PM
  7. CLOZAPINE. [Suspect]
     Active Substance: CLOZAPINE
     Dosage: 100 MG, 1X/DAY AM
  8. SODIUM VALPROATE [Suspect]
     Active Substance: VALPROATE SODIUM
     Indication: SEIZURE
     Dosage: 400 MG, 2X/DAY
     Route: 048
     Dates: start: 201707
  9. ATORVASTATIN [Concomitant]
     Active Substance: ATORVASTATIN
     Dosage: 80 MG, 1X/DAY PM
  10. HALOPERIDOL. [Concomitant]
     Active Substance: HALOPERIDOL
     Dosage: 10 MG, 1X/DAY PM

REACTIONS (16)
  - Mobility decreased [Unknown]
  - Electroencephalogram abnormal [Unknown]
  - Balance disorder [Unknown]
  - Blood alkaline phosphatase increased [Not Recovered/Not Resolved]
  - Generalised tonic-clonic seizure [Unknown]
  - Thrombocytopenia [Not Recovered/Not Resolved]
  - Alanine aminotransferase increased [Unknown]
  - Hyponatraemia [Unknown]
  - Condition aggravated [Unknown]
  - Infection [Unknown]
  - Glomerular filtration rate decreased [Unknown]
  - Antipsychotic drug level above therapeutic [Not Recovered/Not Resolved]
  - Hypercholesterolaemia [Unknown]
  - Gait disturbance [Unknown]
  - Fall [Unknown]
  - Antipsychotic drug level below therapeutic [Unknown]

NARRATIVE: CASE EVENT DATE: 201608
